FAERS Safety Report 4299106-X (Version None)
Quarter: 2004Q1

REPORT INFORMATION
  Report Type: 
  Country: None (occurrence: None)
  Receive Date: 20040217
  Receipt Date: 20040206
  Transmission Date: 20041129
  Serious: Yes (Hospitalization)
  Sender: FDA-Public Use
  Company Number: 2004198140JP

PATIENT
  Age: 67 Year
  Sex: Male

DRUGS (10)
  1. ATENOLOL [Suspect]
     Indication: HYPERTENSION
     Dosage: 50 MG DAILY, ORAL
     Route: 048
     Dates: start: 20030218
  2. NORVASC [Suspect]
     Indication: HYPERTENSION
     Dosage: 5 MG, BID,ORAL
     Route: 048
     Dates: start: 20020531
  3. ALMARL (AROTINOLOL HYDROCHLORIDE) [Suspect]
     Indication: HYPERTENSION
     Dosage: 20 MG DAILY,ORAL
     Route: 048
     Dates: start: 20020606
  4. EPADEL (ETHYL ICOSAPENTATE) [Suspect]
     Indication: ATHEROSCLEROSIS OBLITERANS
     Dosage: 600 MG, TID,ORAL
     Route: 048
     Dates: start: 20020513
  5. TICPILONE (TICLOPIDINE HYDROCHLORIDE) [Suspect]
     Indication: ATHEROSCLEROSIS OBLITERANS
     Dosage: 200 MG DAILY, ORAL
     Route: 048
     Dates: start: 20021226
  6. ASPIRIN [Suspect]
     Indication: ATHEROSCLEROSIS OBLITERANS
     Dosage: 100 MG DAILY, ORAL
     Route: 048
     Dates: start: 20021226
  7. PERDIPINE [Concomitant]
  8. GASTER [Concomitant]
  9. MEILAX (ETHYL LOFLAZEPATE) [Concomitant]
  10. LAMISIL (TERBINAFINE HYDROCHLORIDE) [Concomitant]

REACTIONS (3)
  - ABDOMINAL DISCOMFORT [None]
  - COLON CANCER [None]
  - CONSTIPATION [None]
